FAERS Safety Report 8448379-8 (Version None)
Quarter: 2012Q2

REPORT INFORMATION
  Report Type: 
  Country: None (occurrence: None)
  Receive Date: 20120619
  Receipt Date: 20120607
  Transmission Date: 20120825
  Serious: No
  Sender: FDA-Public Use
  Company Number: US-ASTRAZENECA-2012SE38316

PATIENT
  Age: 79 Year
  Sex: Female

DRUGS (2)
  1. OMEPRAZOLE [Suspect]
     Route: 048
  2. NEXIUM [Suspect]
     Route: 048

REACTIONS (7)
  - ADVERSE EVENT [None]
  - CHEST DISCOMFORT [None]
  - DRUG INEFFECTIVE [None]
  - OESOPHAGEAL FOOD IMPACTION [None]
  - OESOPHAGEAL DILATATION [None]
  - HICCUPS [None]
  - HIATUS HERNIA [None]
